FAERS Safety Report 8426810-1 (Version None)
Quarter: 2012Q2

REPORT INFORMATION
  Report Type: 
  Country: None (occurrence: None)
  Receive Date: 20120611
  Receipt Date: 20120606
  Transmission Date: 20120825
  Serious: Yes (Other)
  Sender: FDA-Public Use
  Company Number: PHHY2011MX94114

PATIENT
  Age: 72 Year
  Sex: Female

DRUGS (3)
  1. RASILEZ [Suspect]
     Indication: HYPERTENSION
     Dosage: 1 DF, A DAY
  2. VALSARTAN [Concomitant]
     Indication: HYPERTENSION
     Dosage: 1 DF, QD
     Route: 048
  3. BISOPROLOL FUMARATE [Concomitant]
     Indication: HYPERTENSION
     Dosage: 1 DF, QD
     Route: 048

REACTIONS (12)
  - VISION BLURRED [None]
  - VULVOVAGINAL BURNING SENSATION [None]
  - CARDIOVASCULAR INSUFFICIENCY [None]
  - EYE SWELLING [None]
  - EYE PAIN [None]
  - GAIT DISTURBANCE [None]
  - ANORECTAL DISCOMFORT [None]
  - CALCIUM DEFICIENCY [None]
  - SPINAL DISORDER [None]
  - DIPLOPIA [None]
  - MUSCLE SPASMS [None]
  - BURNING SENSATION [None]
